FAERS Safety Report 9601630 (Version 2)
Quarter: 2013Q4

REPORT INFORMATION
  Report Type: Spontaneous
  Country: AU (occurrence: AU)
  Receive Date: 20131007
  Receipt Date: 20131007
  Transmission Date: 20140711
  Serious: Yes (Other)
  Sender: FDA-Public Use
  Company Number: AU-BRISTOL-MYERS SQUIBB COMPANY-19458074

PATIENT
  Sex: Male

DRUGS (2)
  1. BYDUREON [Suspect]
     Indication: DIABETES MELLITUS
  2. MAXOLON [Concomitant]

REACTIONS (6)
  - Syncope [Unknown]
  - Nausea [Unknown]
  - Diarrhoea [Unknown]
  - Abdominal distension [Unknown]
  - Product quality issue [Unknown]
  - Flatulence [Unknown]
